FAERS Safety Report 9257051 (Version 1)
Quarter: 2013Q2

REPORT INFORMATION
  Report Type: Spontaneous
  Country: US (occurrence: None)
  Receive Date: 20130424
  Receipt Date: 20130424
  Transmission Date: 20140414
  Serious: No
  Sender: FDA-Public Use
  Company Number: None

PATIENT
  Age: 39 Year
  Sex: Female
  Weight: 61.69 kg

DRUGS (2)
  1. AMPHETAMINE SALTS [Suspect]
     Indication: ATTENTION DEFICIT/HYPERACTIVITY DISORDER
     Route: 048
     Dates: start: 20060301, end: 20060331
  2. AMPHETAMINE SALTS [Suspect]
     Indication: TREATMENT FAILURE
     Route: 048
     Dates: start: 20060301, end: 20060331

REACTIONS (1)
  - Treatment failure [None]
